FAERS Safety Report 4443336-0 (Version None)
Quarter: 2004Q3

REPORT INFORMATION
  Report Type: 
  Country: None (occurrence: None)
  Receive Date: 20040908
  Receipt Date: 20040826
  Transmission Date: 20050211
  Serious: Yes (Hospitalization)
  Sender: FDA-Public Use
  Company Number: PHBS2004LB11406

PATIENT
  Age: 13 Year
  Sex: Female

DRUGS (3)
  1. TEGRETOL [Suspect]
     Indication: EPILEPSY
     Route: 065
  2. EPANUTIN [Suspect]
  3. DEPAKENE [Suspect]

REACTIONS (7)
  - BLOOD 1,25-DIHYDROXYCHOLECALCIFEROL DECREASED [None]
  - BLOOD ALKALINE PHOSPHATASE INCREASED [None]
  - BLOOD PARATHYROID HORMONE INCREASED [None]
  - BLOOD PHOSPHORUS DECREASED [None]
  - HYPOCALCAEMIA [None]
  - STATUS EPILEPTICUS [None]
  - VITAMIN D DEFICIENCY [None]
